FAERS Safety Report 17220705 (Version 1)
Quarter: 2019Q4

REPORT INFORMATION
  Report Type: Report from Study
  Country: GB (occurrence: GB)
  Receive Date: 20191231
  Receipt Date: 20191231
  Transmission Date: 20200122
  Serious: Yes (Hospitalization)
  Sender: FDA-Public Use
  Company Number: GB-CELGENEUS-GBR-20181201291

PATIENT
  Age: 73 Year
  Sex: Male
  Weight: 73.5 kg

DRUGS (4)
  1. ABRAXANE [Suspect]
     Active Substance: PACLITAXEL
     Indication: PANCREATIC CARCINOMA
     Dosage: 190 MILLIGRAM
     Route: 041
     Dates: start: 20180625, end: 20181015
  2. CAPECITABINE. [Suspect]
     Active Substance: CAPECITABINE
     Indication: PANCREATIC CARCINOMA
     Dosage: 3000 MILLIGRAM
     Route: 048
     Dates: start: 20181114, end: 20181127
  3. GEMCITABINE. [Suspect]
     Active Substance: GEMCITABINE
     Indication: PANCREATIC CARCINOMA
     Dosage: 1520 MILLIGRAM
     Route: 041
     Dates: start: 20180625, end: 20181015
  4. NELFINAVIR [Suspect]
     Active Substance: NELFINAVIR
     Indication: PANCREATIC CARCINOMA
     Dosage: 2500 MILLIGRAM
     Route: 048
     Dates: start: 20181105, end: 20181127

REACTIONS (2)
  - Cholecystitis [Recovered/Resolved with Sequelae]
  - Radiation hepatitis [Recovered/Resolved with Sequelae]

NARRATIVE: CASE EVENT DATE: 20181128
